FAERS Safety Report 13441047 (Version 1)
Quarter: 2017Q2

REPORT INFORMATION
  Report Type: Spontaneous
  Country: US (occurrence: US)
  Receive Date: 20170413
  Receipt Date: 20170413
  Transmission Date: 20170830
  Serious: Yes (Other)
  Sender: FDA-Public Use
  Company Number: US-RECORDATI RARE DISEASES-US-R13005-17-00080

PATIENT
  Age: 37 Year
  Sex: Female

DRUGS (12)
  1. RITUXIMAB [Suspect]
     Active Substance: RITUXIMAB
     Indication: DIFFUSE LARGE B-CELL LYMPHOMA
     Route: 042
  2. CYCLOPHOSPHAMIDE. [Suspect]
     Active Substance: CYCLOPHOSPHAMIDE
     Indication: EMBRYONAL RHABDOMYOSARCOMA
     Route: 042
  3. PREDNISONE. [Suspect]
     Active Substance: PREDNISONE
     Indication: DIFFUSE LARGE B-CELL LYMPHOMA
     Route: 065
  4. DOXORUBICIN [Suspect]
     Active Substance: DOXORUBICIN
     Indication: EMBRYONAL RHABDOMYOSARCOMA
  5. VINCRISTINE [Suspect]
     Active Substance: VINCRISTINE
     Indication: EMBRYONAL RHABDOMYOSARCOMA
  6. CYCLOPHOSPHAMIDE. [Suspect]
     Active Substance: CYCLOPHOSPHAMIDE
     Indication: DIFFUSE LARGE B-CELL LYMPHOMA
  7. VINCRISTINE [Suspect]
     Active Substance: VINCRISTINE
     Indication: DIFFUSE LARGE B-CELL LYMPHOMA
     Route: 042
  8. PREDNISONE. [Suspect]
     Active Substance: PREDNISONE
     Indication: EMBRYONAL RHABDOMYOSARCOMA
  9. GRANULOCYTE COLONY STIMULATING FACTOR [Concomitant]
     Active Substance: GRANULOCYTE COLONY-STIMULATING FACTOR NOS
     Indication: PRODUCT USED FOR UNKNOWN INDICATION
     Route: 065
  10. RITUXIMAB [Suspect]
     Active Substance: RITUXIMAB
     Indication: EMBRYONAL RHABDOMYOSARCOMA
  11. DACTINOMYCIN [Suspect]
     Active Substance: DACTINOMYCIN
     Indication: EMBRYONAL RHABDOMYOSARCOMA
     Route: 042
  12. DOXORUBICIN [Suspect]
     Active Substance: DOXORUBICIN
     Indication: DIFFUSE LARGE B-CELL LYMPHOMA
     Route: 042

REACTIONS (3)
  - Neutropenia [Recovered/Resolved]
  - Off label use [Unknown]
  - Mucosal inflammation [Recovered/Resolved]
